FAERS Safety Report 6893503-1 (Version None)
Quarter: 2010Q3

REPORT INFORMATION
  Report Type: 
  Country: None (occurrence: None)
  Receive Date: 20100731
  Receipt Date: 20090924
  Transmission Date: 20110219
  Serious: No
  Sender: FDA-Public Use
  Company Number: US-PFIZER INC-2009275406

PATIENT
  Sex: Female
  Weight: 95.254 kg

DRUGS (2)
  1. LIPITOR [Suspect]
     Indication: BLOOD CHOLESTEROL INCREASED
     Dosage: 20 MG, 1X/DAY
     Dates: start: 20090914, end: 20090901
  2. FISH OIL [Concomitant]
     Indication: BLOOD CHOLESTEROL INCREASED
     Dates: start: 20090914

REACTIONS (2)
  - MALAISE [None]
  - MYALGIA [None]
